FAERS Safety Report 16835322 (Version 2)
Quarter: 2020Q1

REPORT INFORMATION
  Report Type: Report from Study
  Country: US (occurrence: US)
  Receive Date: 20190920
  Receipt Date: 20200109
  Transmission Date: 20200409
  Serious: Yes (Other)
  Sender: FDA-Public Use
  Company Number: US-AMGEN-USASL2019005290

PATIENT
  Age: 59 Year
  Sex: Female

DRUGS (5)
  1. REPATHA [Suspect]
     Active Substance: EVOLOCUMAB
     Indication: HYPERLIPIDAEMIA
  2. REPATHA [Suspect]
     Active Substance: EVOLOCUMAB
     Indication: ARTERIAL OCCLUSIVE DISEASE
  3. REPATHA [Suspect]
     Active Substance: EVOLOCUMAB
     Indication: LIPIDS ABNORMAL
     Dosage: 140 MILLIGRAM, Q2WK
     Route: 065
     Dates: end: 20191007
  4. REPATHA [Suspect]
     Active Substance: EVOLOCUMAB
     Indication: HYPERCHOLESTEROLAEMIA
  5. REPATHA [Suspect]
     Active Substance: EVOLOCUMAB
     Indication: BLOOD CHOLESTEROL INCREASED

REACTIONS (12)
  - Pain in extremity [Not Recovered/Not Resolved]
  - Genital erythema [Unknown]
  - Pruritus genital [Unknown]
  - Back pain [Not Recovered/Not Resolved]
  - Arthralgia [Unknown]
  - Oral pain [Not Recovered/Not Resolved]
  - Genital rash [Recovering/Resolving]
  - Oral mucosal erythema [Unknown]
  - Arthropathy [Unknown]
  - Glossodynia [Not Recovered/Not Resolved]
  - Swollen tongue [Unknown]
  - Gait disturbance [Unknown]

NARRATIVE: CASE EVENT DATE: 2019
